FAERS Safety Report 8600493-X (Version None)
Quarter: 2012Q3

REPORT INFORMATION
  Report Type: 
  Country: None (occurrence: None)
  Receive Date: 20120817
  Receipt Date: 20110802
  Transmission Date: 20120928
  Serious: No
  Sender: FDA-Public Use
  Company Number: US-PFIZER INC-2011176272

PATIENT
  Age: 29 Year
  Sex: Male

DRUGS (1)
  1. GEODON [Suspect]
     Indication: BIPOLAR DISORDER
     Dosage: UNK

REACTIONS (13)
  - BRUXISM [None]
  - HAIR COLOUR CHANGES [None]
  - SPUTUM DISCOLOURED [None]
  - NASAL CONGESTION [None]
  - DRY EYE [None]
  - SWOLLEN TONGUE [None]
  - HEADACHE [None]
  - EYE PAIN [None]
  - SKIN DISCOLOURATION [None]
  - HAIR GROWTH ABNORMAL [None]
  - ACNE [None]
  - EYE OEDEMA [None]
  - CHEST PAIN [None]
